FAERS Safety Report 15845524 (Version 1)
Quarter: 2019Q1

REPORT INFORMATION
  Report Type: Spontaneous
  Country: US (occurrence: US)
  Receive Date: 20190119
  Receipt Date: 20190119
  Transmission Date: 20190417
  Serious: No
  Sender: FDA-Public Use
  Company Number: US-JNJFOC-20190107949

PATIENT
  Sex: Male

DRUGS (3)
  1. PREDNISONE. [Concomitant]
     Active Substance: PREDNISONE
     Indication: HORMONE-DEPENDENT PROSTATE CANCER
     Route: 065
  2. ZYTIGA [Suspect]
     Active Substance: ABIRATERONE ACETATE
     Indication: HORMONE-DEPENDENT PROSTATE CANCER
     Route: 048
     Dates: start: 201812
  3. FIRMAGON [Suspect]
     Active Substance: DEGARELIX ACETATE
     Indication: HORMONE-DEPENDENT PROSTATE CANCER
     Route: 065

REACTIONS (2)
  - Hypotension [Unknown]
  - Blood potassium increased [Unknown]
